FAERS Safety Report 5507918-7 (Version None)
Quarter: 2007Q4

REPORT INFORMATION
  Report Type: 
  Country: None (occurrence: None)
  Receive Date: 20071106
  Receipt Date: 20071025
  Transmission Date: 20080405
  Serious: Yes (Hospitalization)
  Sender: FDA-Public Use
  Company Number: FR-PFIZER INC-2006071808

PATIENT
  Age: 61 Year
  Sex: Male

DRUGS (9)
  1. NORVASC [Suspect]
     Indication: ESSENTIAL HYPERTENSION
     Route: 048
  2. RILMENIDINE [Suspect]
     Indication: ESSENTIAL HYPERTENSION
     Route: 048
  3. SIROLIMUS [Suspect]
     Indication: RENAL TRANSPLANT
     Route: 048
  4. URAPIDIL [Suspect]
     Indication: ESSENTIAL HYPERTENSION
     Route: 048
  5. BROMAZEPAM [Suspect]
     Indication: ANXIETY
     Dosage: TEXT:1 DOSE FORM-FREQ:TID
     Route: 048
  6. FUROSEMIDE [Suspect]
     Indication: ESSENTIAL HYPERTENSION
     Route: 048
  7. CALCIUM CARBONATE/COLECALCIFEROL [Concomitant]
     Dosage: TEXT:UNKNOWN
     Route: 065
  8. PAROXETINE HCL [Concomitant]
     Dosage: TEXT:UNKNOWN
     Route: 065
  9. ENOXAPARIN SODIUM [Concomitant]
     Dosage: TEXT:UNKNOWN
     Route: 065

REACTIONS (1)
  - GUILLAIN-BARRE SYNDROME [None]
